FAERS Safety Report 9751830 (Version 4)
Quarter: 2014Q1

REPORT INFORMATION
  Report Type: Report from Study
  Country: US (occurrence: US)
  Receive Date: 20131213
  Receipt Date: 20140130
  Transmission Date: 20141002
  Serious: Yes (Other)
  Sender: FDA-Public Use
  Company Number: US-ROCHE-1314873

PATIENT
  Age: 63 Year
  Sex: Female

DRUGS (11)
  1. RITUXAN [Suspect]
     Indication: PRODUCT USED FOR UNKNOWN INDICATION
     Route: 065
     Dates: start: 201211
  2. CELLCEPT [Suspect]
     Indication: PRODUCT USED FOR UNKNOWN INDICATION
     Route: 048
  3. FOLIC ACID [Concomitant]
     Route: 065
  4. MAXZIDE [Concomitant]
     Dosage: DOSE : 25 37.5-2 MG.
     Route: 065
  5. PAROXETINE HCL [Concomitant]
     Route: 065
  6. PLAVIX [Concomitant]
     Route: 065
  7. PREMARIN [Concomitant]
     Route: 065
  8. TOPIRAMATE [Concomitant]
     Route: 065
  9. ZEGERID OTC [Concomitant]
     Dosage: DOSE : 40 TO 1100 MG.
     Route: 065
  10. ZOCOR [Concomitant]
     Route: 065
  11. ALLEGRA [Concomitant]
     Route: 065

REACTIONS (28)
  - Tremor [Unknown]
  - Hemiparesis [Unknown]
  - Dysarthria [Unknown]
  - Asthenia [Unknown]
  - Weight decreased [Unknown]
  - Fatigue [Unknown]
  - Vision blurred [Unknown]
  - Dysphagia [Unknown]
  - Dysuria [Unknown]
  - Dry eye [Unknown]
  - Diplopia [Unknown]
  - Deafness [Unknown]
  - Dry mouth [Unknown]
  - Glossodynia [Unknown]
  - Cough [Unknown]
  - Dyspnoea [Unknown]
  - Nausea [Unknown]
  - Constipation [Unknown]
  - Dizziness [Unknown]
  - Muscle spasms [Unknown]
  - Anxiety [Unknown]
  - Depression [Unknown]
  - Initial insomnia [Unknown]
  - Cerebrovascular accident [Unknown]
  - Dysphonia [Unknown]
  - Hyperaesthesia [Unknown]
  - Drug ineffective [Unknown]
  - Cerebrovascular accident [Unknown]
